FAERS Safety Report 5953008-9 (Version None)
Quarter: 2008Q4

REPORT INFORMATION
  Report Type: 
  Country: None (occurrence: None)
  Receive Date: 20081114
  Receipt Date: 20080725
  Transmission Date: 20090506
  Serious: No
  Sender: FDA-Public Use
  Company Number: US-BRISTOL-MYERS SQUIBB COMPANY-14278196

PATIENT
  Age: 58 Year
  Sex: Female
  Weight: 61 kg

DRUGS (6)
  1. IXEMPRA KIT [Suspect]
     Indication: BREAST CANCER METASTATIC
     Dates: start: 20080501
  2. SYNTHROID [Concomitant]
  3. FOLIC ACID [Concomitant]
  4. NEXIUM [Concomitant]
  5. CALCIUM [Concomitant]
  6. VITAMIN TAB [Concomitant]

REACTIONS (1)
  - TUMOUR MARKER INCREASED [None]
